FAERS Safety Report 10302166 (Version 1)
Quarter: 2014Q3

REPORT INFORMATION
  Report Type: Spontaneous
  Country: US (occurrence: US)
  Receive Date: 20140714
  Receipt Date: 20140714
  Transmission Date: 20150326
  Serious: No
  Sender: FDA-Public Use
  Company Number: US-BAUSCH-BL-2014-002190

PATIENT
  Age: 72 Year
  Sex: Male
  Weight: 90.8 kg

DRUGS (4)
  1. NEVANAC [Concomitant]
     Active Substance: NEPAFENAC
     Indication: PRODUCT USED FOR UNKNOWN INDICATION
     Dates: start: 20140423
  2. BESIVANCE [Suspect]
     Active Substance: BESIFLOXACIN
     Indication: PROPHYLAXIS
     Dosage: ONE DROP THREE TIMES A DAY
     Route: 031
     Dates: start: 20140423
  3. ARTIFICIAL TEARS [Concomitant]
     Active Substance: GLYCERIN\HYPROMELLOSES\POLYETHYLENE GLYCOL 400
     Indication: PRODUCT USED FOR UNKNOWN INDICATION
     Dates: start: 20140423
  4. DUREZOL [Concomitant]
     Active Substance: DIFLUPREDNATE
     Indication: PRODUCT USED FOR UNKNOWN INDICATION
     Dates: start: 20140423

REACTIONS (3)
  - Vision blurred [Unknown]
  - Off label use [Unknown]
  - Reaction to preservatives [Unknown]

NARRATIVE: CASE EVENT DATE: 20140423
